FAERS Safety Report 8971392 (Version 3)
Quarter: 2013Q1

REPORT INFORMATION
  Report Type: Spontaneous
  Country: US (occurrence: US)
  Receive Date: 20121218
  Receipt Date: 20130102
  Transmission Date: 20140127
  Serious: No
  Sender: FDA-Public Use
  Company Number: US-VERTEX PHARMACEUTICALS INC.-2012-025894

PATIENT
  Age: 58 None
  Sex: Female
  Weight: 59 kg

DRUGS (12)
  1. INCIVEK [Suspect]
     Indication: HEPATITIS C
     Dosage: 750 MG, TID
     Route: 048
     Dates: start: 20121017, end: 20121127
  2. INCIVEK [Suspect]
     Dosage: 750 MG, TID
     Route: 048
     Dates: start: 20121129
  3. RIBAVIRIN [Suspect]
     Indication: HEPATITIS C
     Dosage: 400MG AM, 600 MG PM
     Route: 048
     Dates: start: 20121017, end: 20121127
  4. RIBAVIRIN [Suspect]
     Dosage: 400MG AM, 600MG PM
     Route: 048
     Dates: start: 20121129
  5. RIBAVIRIN [Suspect]
     Dosage: 5 DF, QD
     Route: 048
     Dates: start: 2012
  6. RIBAVIRIN [Suspect]
     Dosage: 4 DF, QD
     Route: 048
     Dates: start: 2012, end: 20121228
  7. PEGASYS [Suspect]
     Indication: HEPATITIS C
     Dosage: 180 ?G, QW
     Route: 058
     Dates: start: 20121017, end: 20121127
  8. PEGASYS [Suspect]
     Dosage: 180 ?G, QW
     Route: 058
     Dates: start: 20121129, end: 20121228
  9. LASIX                              /00032601/ [Concomitant]
     Dosage: 20 MG, UNK
     Route: 048
  10. CYCLOBENAZAPRINE [Concomitant]
     Dosage: 10 MG, QD
  11. ALENDRONATE [Concomitant]
     Dosage: 70 MG,QW
     Route: 048
  12. CITALOPRAM [Concomitant]
     Dosage: 5 MG, QD
     Route: 048

REACTIONS (8)
  - White blood cell count decreased [Not Recovered/Not Resolved]
  - Staphylococcal infection [Recovered/Resolved]
  - Blood thyroid stimulating hormone increased [Not Recovered/Not Resolved]
  - Weight increased [Unknown]
  - Local swelling [Not Recovered/Not Resolved]
  - Rash generalised [Recovered/Resolved]
  - Anaemia [Not Recovered/Not Resolved]
  - Pruritus [Unknown]
